FAERS Safety Report 11347629 (Version 1)
Quarter: 2015Q3

REPORT INFORMATION
  Report Type: Spontaneous
  Country: US (occurrence: US)
  Receive Date: 20150803
  Receipt Date: 20150803
  Transmission Date: 20151125
  Serious: No
  Sender: FDA-Public Use
  Company Number: US-ELI_LILLY_AND_COMPANY-US201102007238

PATIENT
  Sex: Male

DRUGS (13)
  1. CLONOPIN [Concomitant]
     Active Substance: CLONAZEPAM
     Dosage: 5 MG, UNK
  2. FLEXERIL [Concomitant]
     Active Substance: CYCLOBENZAPRINE HYDROCHLORIDE
  3. ROZEREM [Concomitant]
     Active Substance: RAMELTEON
  4. BENADRYL [Concomitant]
     Active Substance: DIPHENHYDRAMINE HYDROCHLORIDE
  5. OMEPRAZOLE. [Concomitant]
     Active Substance: OMEPRAZOLE
  6. ZYPREXA ZYDIS [Suspect]
     Active Substance: OLANZAPINE
     Indication: SCHIZOPHRENIA
     Dosage: 10 MG, 3/D
  7. LORATADIN [Concomitant]
     Active Substance: LORATADINE
  8. TOPAMAX [Concomitant]
     Active Substance: TOPIRAMATE
  9. NEURONTIN [Concomitant]
     Active Substance: GABAPENTIN
  10. LEVOTHYROXINE. [Concomitant]
     Active Substance: LEVOTHYROXINE
  11. HYDROCHLOROTHIAZIDE. [Concomitant]
     Active Substance: HYDROCHLOROTHIAZIDE
  12. FUROSEMIDE. [Concomitant]
     Active Substance: FUROSEMIDE
  13. TRAZODONE [Concomitant]
     Active Substance: TRAZODONE HYDROCHLORIDE

REACTIONS (3)
  - Weight decreased [Unknown]
  - Overdose [Unknown]
  - Dyskinesia [Unknown]

NARRATIVE: CASE EVENT DATE: 2011
